FAERS Safety Report 7610922-6 (Version None)
Quarter: 2011Q3

REPORT INFORMATION
  Report Type: 
  Country: None (occurrence: None)
  Receive Date: 20110707
  Receipt Date: 20110621
  Transmission Date: 20111222
  Serious: Yes (Death, Hospitalization)
  Sender: FDA-Public Use
  Company Number: TCI2011A03429

PATIENT
  Age: 83 Year
  Sex: Male

DRUGS (14)
  1. CANDESARTAN CILEXETIL [Suspect]
     Indication: HYPERTENSION
     Dosage: 12 MG (12 MG, 1IN 1 D) PER ORAL
     Route: 048
     Dates: end: 20101203
  2. LASIX [Concomitant]
  3. ACTOS [Suspect]
     Indication: TYPE 2 DIABETES MELLITUS
     Dosage: 15 MG (15 MG, 1 IN 1 D) PER ORAL
     Route: 048
     Dates: start: 20100109, end: 20101110
  4. TAKEPRON (LANSOPRAZOLE) [Concomitant]
  5. TAMSULOSIN HCL [Concomitant]
  6. CALBLOCK (AZELNIDIPINE) [Suspect]
     Indication: HYPERTENSION
     Dosage: 8 MG (8 MG, 1 IN 1 D PER ORAL)
     Route: 048
     Dates: end: 20101203
  7. ZOLPIDEM TARTRATE [Suspect]
     Dosage: 5 MG (5 MG, 1 IN 1 D) PER ORAL
     Route: 048
     Dates: end: 20101203
  8. SELTOUCH (FELBINAC) [Concomitant]
  9. WYTENSIN [Suspect]
     Indication: HYPERTENSION
     Dosage: 2 MG (2 MG, 1 IN 1 D) PER ORAL
     Route: 048
     Dates: end: 20100909
  10. LIPITOR [Suspect]
     Indication: DYSLIPIDAEMIA
     Dosage: 10 MG (10 MG, 1 IN 1 D) PER ORAL
     Route: 048
     Dates: end: 20101202
  11. NOVORAPID 30 MIX (INSULIN ASPART) [Suspect]
     Indication: TYPE 2 DIABETES MELLITUS
     Dosage: 32 UT (32 UT, 1 D), SUBCUTANEOUS, 2 IN 1 D, SUBCUTANEOUS
     Route: 058
     Dates: end: 20101204
  12. NOVORAPID 30 MIX (INSULIN ASPART) [Suspect]
     Indication: TYPE 2 DIABETES MELLITUS
     Dosage: 32 UT (32 UT, 1 D), SUBCUTANEOUS, 2 IN 1 D, SUBCUTANEOUS
     Route: 058
     Dates: end: 20101116
  13. ACETYLSALICYLIC ACID SRT [Concomitant]
  14. PURSENNID (SENNA ALEXANDRINA LEAF) [Concomitant]

REACTIONS (2)
  - URINARY TRACT INFECTION [None]
  - RECTAL CANCER [None]
